FAERS Safety Report 9097836 (Version 1)
Quarter: 2013Q1

REPORT INFORMATION
  Report Type: Spontaneous
  Country: US (occurrence: US)
  Receive Date: 20130212
  Receipt Date: 20130212
  Transmission Date: 20140127
  Serious: No
  Sender: FDA-Public Use
  Company Number: US-TEVA-345303USA

PATIENT
  Age: 71 Year
  Sex: Female

DRUGS (8)
  1. SALBUTAMOL [Suspect]
     Indication: CHRONIC OBSTRUCTIVE PULMONARY DISEASE
     Dates: start: 201205, end: 20120607
  2. DALIRESP (ROFLUMILAST) [Suspect]
     Indication: CHRONIC OBSTRUCTIVE PULMONARY DISEASE
     Dosage: 500 MICROGRAM DAILY;
     Dates: start: 201205
  3. BUDESONIDE W/FORMOTEROL FUMARATE [Concomitant]
  4. TIOTROPIUM BROMIDE [Concomitant]
     Indication: CHRONIC OBSTRUCTIVE PULMONARY DISEASE
  5. LOVASTATIN [Concomitant]
  6. CITALOPRAM [Concomitant]
  7. LEVOSALBUTAMOL [Concomitant]
     Indication: CHRONIC OBSTRUCTIVE PULMONARY DISEASE
  8. VERAPAMIL [Concomitant]
     Indication: HEART RATE INCREASED

REACTIONS (1)
  - Heart rate increased [Recovered/Resolved]
